FAERS Safety Report 6807864-2 (Version None)
Quarter: 2010Q2

REPORT INFORMATION
  Report Type: 
  Country: None (occurrence: None)
  Receive Date: 20100629
  Receipt Date: 20090122
  Transmission Date: 20101027
  Serious: No
  Sender: FDA-Public Use
  Company Number: US-PFIZER INC-2009150412

PATIENT
  Sex: Male
  Weight: 74.8 kg

DRUGS (5)
  1. VIAGRA [Suspect]
     Indication: ERECTILE DYSFUNCTION
     Dosage: UNK
     Dates: start: 20060201
  2. BETACAROTENE [Interacting]
     Indication: EYE DEGENERATIVE DISORDER
  3. ICAPS [Interacting]
     Indication: EYE DEGENERATIVE DISORDER
  4. MONTELUKAST [Concomitant]
     Dosage: UNK
  5. LEVITRA [Concomitant]
     Indication: ERECTILE DYSFUNCTION
     Dosage: UNK

REACTIONS (3)
  - DRUG INEFFECTIVE [None]
  - DRUG INTERACTION [None]
  - EYE DEGENERATIVE DISORDER [None]
